FAERS Safety Report 10567560 (Version 5)
Quarter: 2015Q1

REPORT INFORMATION
  Report Type: Spontaneous
  Country: US (occurrence: US)
  Receive Date: 20141106
  Receipt Date: 20150109
  Transmission Date: 20150720
  Serious: Yes (Hospitalization)
  Sender: FDA-Public Use
  Company Number: US-BIOGENIDEC-2014BI113589

PATIENT
  Age: 71 Year
  Sex: Female
  Weight: 63 kg

DRUGS (13)
  1. BACLOFEN. [Concomitant]
     Active Substance: BACLOFEN
  2. ENALAPRIL MALEATE. [Concomitant]
     Active Substance: ENALAPRIL MALEATE
  3. FUROSEMIDE. [Concomitant]
     Active Substance: FUROSEMIDE
  4. AMPYRA [Concomitant]
     Active Substance: DALFAMPRIDINE
     Indication: GAIT DISTURBANCE
     Route: 048
     Dates: start: 201306
  5. MUCINEX [Concomitant]
     Active Substance: GUAIFENESIN
  6. VITAMIN D [Concomitant]
     Active Substance: CHOLECALCIFEROL
  7. POTASSIUM [Concomitant]
     Active Substance: POTASSIUM
  8. AMPYRA [Concomitant]
     Active Substance: DALFAMPRIDINE
     Indication: MULTIPLE SCLEROSIS
     Route: 048
     Dates: start: 201306
  9. PRILOSEC [Concomitant]
     Active Substance: OMEPRAZOLE MAGNESIUM
  10. AVONEX [Suspect]
     Active Substance: INTERFERON BETA-1A
     Indication: MULTIPLE SCLEROSIS
     Route: 030
     Dates: start: 200404, end: 20140920
  11. AMPYRA [Concomitant]
     Active Substance: DALFAMPRIDINE
     Indication: BALANCE DISORDER
     Route: 048
     Dates: start: 201306
  12. BIOTIN [Concomitant]
     Active Substance: BIOTIN
  13. PRAVASTATIN SODIUM. [Concomitant]
     Active Substance: PRAVASTATIN SODIUM

REACTIONS (2)
  - Warm type haemolytic anaemia [Recovered/Resolved]
  - Loss of consciousness [Recovered/Resolved]

NARRATIVE: CASE EVENT DATE: 20140915
